FAERS Safety Report 16501251 (Version 2)
Quarter: 2019Q3

REPORT INFORMATION
  Report Type: Spontaneous
  Country: PL (occurrence: PL)
  Receive Date: 20190701
  Receipt Date: 20190919
  Transmission Date: 20191004
  Serious: Yes (Other)
  Sender: FDA-Public Use
  Company Number: PL-PFIZER INC-2019270854

PATIENT
  Age: 43 Year
  Sex: Male

DRUGS (7)
  1. CYCLOPHOSPHAMIDE. [Suspect]
     Active Substance: CYCLOPHOSPHAMIDE
     Indication: B-CELL LYMPHOMA
     Dosage: UNK UNK, CYCLIC
     Route: 042
     Dates: start: 20150724, end: 20160105
  2. DOXORUBICIN HCL [Suspect]
     Active Substance: DOXORUBICIN HYDROCHLORIDE
     Indication: B-CELL LYMPHOMA
     Dosage: UNK UNK, CYCLIC
     Route: 042
     Dates: start: 20150724, end: 20160105
  3. RITUXIMAB. [Suspect]
     Active Substance: RITUXIMAB
     Indication: B-CELL LYMPHOMA
     Dosage: UNK, CYCLIC  (R-CHOP 8 CYCLES)
     Route: 042
     Dates: start: 20150724, end: 20160105
  4. VINCRISTIN [Suspect]
     Active Substance: VINCRISTINE
     Indication: B-CELL LYMPHOMA
     Dosage: UNK UNK, CYCLIC
     Route: 042
     Dates: start: 20150724, end: 20160105
  5. RITUXIMAB. [Suspect]
     Active Substance: RITUXIMAB
     Dosage: UNK (SUPPORTING TREATMENT WITH RITUXIMAB 9 CYCLES) EVERY 8 WEEKS
     Route: 042
     Dates: start: 20160415, end: 20170127
  6. PREDNISOLONE. [Suspect]
     Active Substance: PREDNISOLONE
     Indication: B-CELL LYMPHOMA
     Dosage: UNK UNK, CYCLIC
     Route: 042
  7. RITUXIMAB/VORHYALURONIDASE ALFA [Suspect]
     Active Substance: HYALURONIDASE (HUMAN RECOMBINANT)\RITUXIMAB
     Indication: B-CELL LYMPHOMA
     Dosage: UNK, RITUXIMAB, HYALURONIDASE (HUMAN RECOMBINANT), SOLUTION FOR INJECTION
     Route: 058
     Dates: start: 20170324, end: 20170728

REACTIONS (5)
  - Hypoaesthesia [Unknown]
  - Lymphoedema [Unknown]
  - Polyneuropathy [Unknown]
  - Neoplasm progression [Unknown]
  - Retroperitoneal lymphadenopathy [Unknown]
